FAERS Safety Report 5671869-8 (Version None)
Quarter: 2008Q1

REPORT INFORMATION
  Report Type: 
  Country: None (occurrence: None)
  Receive Date: 20080317
  Receipt Date: 20080317
  Transmission Date: 20080703
  Serious: Yes (Life-Threatening, Hospitalization)
  Sender: FDA-Public Use
  Company Number: None

PATIENT
  Age: 86 Year
  Weight: 70.7611 kg

DRUGS (1)
  1. ATROPINE [Suspect]

REACTIONS (7)
  - DISORIENTATION [None]
  - DIZZINESS [None]
  - DYSPHAGIA [None]
  - DYSSTASIA [None]
  - EYE MOVEMENT DISORDER [None]
  - HALLUCINATION [None]
  - VISUAL DISTURBANCE [None]
